FAERS Safety Report 20622267 (Version 1)
Quarter: 2022Q1

REPORT INFORMATION
  Report Type: Spontaneous
  Country: FR (occurrence: FR)
  Receive Date: 20220322
  Receipt Date: 20220322
  Transmission Date: 20220423
  Serious: Yes (Congenital Anomaly, Other)
  Sender: FDA-Public Use
  Company Number: FR-ABBVIE-22K-056-4321535-00

PATIENT

DRUGS (2)
  1. VALPROATE SODIUM [Suspect]
     Active Substance: VALPROATE SODIUM
     Indication: Maternal exposure timing unspecified
     Route: 064
  2. VALPROMIDE [Suspect]
     Active Substance: VALPROMIDE
     Indication: Maternal exposure timing unspecified
     Route: 064

REACTIONS (19)
  - Limb malformation [Unknown]
  - Kyphosis [Unknown]
  - Dysmorphism [Unknown]
  - Cardiac disorder [Unknown]
  - Foot deformity [Unknown]
  - Speech disorder developmental [Unknown]
  - Craniosynostosis [Unknown]
  - Spinal deformity [Unknown]
  - Learning disorder [Unknown]
  - Psychomotor retardation [Unknown]
  - Visual impairment [Unknown]
  - Speech disorder [Unknown]
  - Memory impairment [Unknown]
  - Skull malformation [Unknown]
  - Cognitive disorder [Unknown]
  - Intellectual disability [Unknown]
  - Disturbance in attention [Unknown]
  - Ear, nose and throat disorder [Unknown]
  - Foetal exposure during pregnancy [Unknown]

NARRATIVE: CASE EVENT DATE: 20030327
